FAERS Safety Report 4528093-1 (Version None)
Quarter: 2004Q4

REPORT INFORMATION
  Report Type: 
  Country: None (occurrence: None)
  Receive Date: 20041124
  Receipt Date: 20040107
  Transmission Date: 20050328
  Serious: Yes (Other)
  Sender: FDA-Public Use
  Company Number: A206023

PATIENT
  Age: 69 Year
  Sex: Female
  Weight: 74.8435 kg

DRUGS (10)
  1. TIKOSYN [Suspect]
     Indication: ATRIAL FIBRILLATION
     Dosage: 1000 MCG (BID), ORAL
     Route: 048
     Dates: start: 20020101
  2. COUMADIN [Suspect]
     Indication: ILL-DEFINED DISORDER
     Dosage: 5 MG (DAILY), ORAL
     Route: 048
  3. COENZYME Q10 [Concomitant]
  4. FISH OIL (FISH OIL) [Concomitant]
  5. VITAMIN C (ASCORBIC ACID) [Concomitant]
  6. VITAMIN E [Concomitant]
  7. FOLIC ACID [Concomitant]
  8. CALCIUM (CALCIUM) [Concomitant]
  9. GAS-X (SIMETICONE) [Concomitant]
  10. MAGNESIUM (MAGNESIUM) [Concomitant]

REACTIONS (4)
  - COAGULATION TIME PROLONGED [None]
  - HEART RATE IRREGULAR [None]
  - HYPOTRICHOSIS [None]
  - VENTRICULAR TACHYCARDIA [None]
